FAERS Safety Report 10522950 (Version 3)
Quarter: 2016Q2

REPORT INFORMATION
  Report Type: Spontaneous
  Country: US (occurrence: US)
  Receive Date: 20141016
  Receipt Date: 20160504
  Transmission Date: 20160815
  Serious: Yes (Hospitalization, Other)
  Sender: FDA-Public Use
  Company Number: US-GLAXOSMITHKLINE-US2014GSK006512

PATIENT
  Age: 59 Year
  Sex: Female

DRUGS (3)
  1. ADVAIR HFA [Suspect]
     Active Substance: FLUTICASONE PROPIONATE\SALMETEROL XINAFOATE
     Indication: CHRONIC OBSTRUCTIVE PULMONARY DISEASE
     Dosage: 1 PUFF(S), QD
     Route: 055
     Dates: start: 2003
  2. NEBULIZED ALBUTEROL [Concomitant]
     Active Substance: ALBUTEROL
  3. VENTOLIN HFA [Suspect]
     Active Substance: ALBUTEROL SULFATE
     Indication: CHRONIC OBSTRUCTIVE PULMONARY DISEASE
     Dosage: 2 PUFF(S), PRN
     Route: 055
     Dates: start: 2006

REACTIONS (8)
  - Emphysema [Unknown]
  - Hospitalisation [Unknown]
  - Drug ineffective [Unknown]
  - Cardiac stress test [Recovered/Resolved]
  - Cardiac failure congestive [Unknown]
  - Pulmonary pain [Recovered/Resolved]
  - Dyspnoea [Not Recovered/Not Resolved]
  - Underdose [Unknown]

NARRATIVE: CASE EVENT DATE: 20141225
